FAERS Safety Report 6651764-8 (Version None)
Quarter: 2010Q1

REPORT INFORMATION
  Report Type: 
  Country: None (occurrence: None)
  Receive Date: 20100325
  Receipt Date: 20100316
  Transmission Date: 20100710
  Serious: Yes (Other)
  Sender: FDA-Public Use
  Company Number: US-ABBOTT-10P-163-0630775-00

PATIENT
  Sex: Female
  Weight: 71.2 kg

DRUGS (12)
  1. DEPAKOTE [Suspect]
     Indication: DRUG USE FOR UNKNOWN INDICATION
  2. CHANTIX [Suspect]
     Indication: SMOKING CESSATION THERAPY
     Dates: start: 20100131, end: 20100209
  3. CHANTIX [Suspect]
  4. CHANTIX [Suspect]
     Dates: end: 20100209
  5. XANAX [Suspect]
     Indication: DRUG USE FOR UNKNOWN INDICATION
  6. LYRICA [Suspect]
     Indication: DRUG USE FOR UNKNOWN INDICATION
  7. METHADONE [Suspect]
     Indication: DRUG USE FOR UNKNOWN INDICATION
  8. LASIX [Suspect]
     Indication: DRUG USE FOR UNKNOWN INDICATION
  9. KLOR-CON [Suspect]
     Indication: DRUG USE FOR UNKNOWN INDICATION
  10. PERCOCET [Suspect]
     Indication: DRUG USE FOR UNKNOWN INDICATION
  11. PAXIL [Suspect]
     Indication: DRUG USE FOR UNKNOWN INDICATION
  12. PHENOBARBITAL TAB [Suspect]
     Indication: DRUG USE FOR UNKNOWN INDICATION

REACTIONS (1)
  - SURGERY [None]
